FAERS Safety Report 12422982 (Version 1)
Quarter: 2016Q2

REPORT INFORMATION
  Report Type: Spontaneous
  Country: US (occurrence: None)
  Receive Date: 20160531
  Receipt Date: 20160531
  Transmission Date: 20160815
  Serious: Yes (Disabling)
  Sender: FDA-Public Use
  Company Number: None

PATIENT
  Age: 22 Year
  Sex: Female
  Weight: 58.97 kg

DRUGS (4)
  1. PARAGARD T 380A [Suspect]
     Active Substance: COPPER
     Dates: start: 20150123, end: 20160329
  2. METAL MAGIC [Concomitant]
  3. CILANTRO [Concomitant]
  4. CHLORELLA VULGARIS [Concomitant]
     Active Substance: CHLORELLA VULGARIS

REACTIONS (4)
  - Toxicity to various agents [None]
  - Migraine [None]
  - Depression [None]
  - Panic attack [None]

NARRATIVE: CASE EVENT DATE: 20150129
